FAERS Safety Report 6204889-5 (Version None)
Quarter: 2009Q2

REPORT INFORMATION
  Report Type: 
  Country: None (occurrence: None)
  Receive Date: 20090527
  Receipt Date: 20090519
  Transmission Date: 20091009
  Serious: Yes (Hospitalization)
  Sender: FDA-Public Use
  Company Number: US-MERCK-0706USA03718

PATIENT
  Age: 53 Year
  Sex: Female

DRUGS (3)
  1. FOSAMAX [Suspect]
     Indication: OSTEOPOROSIS
     Route: 048
  2. ZOLOFT [Concomitant]
     Indication: DEPRESSION
     Route: 065
  3. AUGMENTIN '125' [Concomitant]
     Route: 065

REACTIONS (8)
  - ABSCESS ORAL [None]
  - CYST [None]
  - MAJOR DEPRESSION [None]
  - PAIN [None]
  - SINUS POLYP [None]
  - SINUSITIS [None]
  - TEMPOROMANDIBULAR JOINT SYNDROME [None]
  - TOOTH LOSS [None]
